FAERS Safety Report 6843151-4 (Version None)
Quarter: 2010Q3

REPORT INFORMATION
  Report Type: 
  Country: None (occurrence: None)
  Receive Date: 20100715
  Receipt Date: 20100702
  Transmission Date: 20110219
  Serious: Yes (Hospitalization)
  Sender: FDA-Public Use
  Company Number: US-BIOGENIDEC-2010BI016415

PATIENT
  Age: 49 Year
  Sex: Female
  Weight: 98 kg

DRUGS (14)
  1. TYSABRI [Suspect]
     Indication: MULTIPLE SCLEROSIS
     Route: 042
     Dates: start: 20080909, end: 20100330
  2. XANAX [Concomitant]
  3. ZOFRAN [Concomitant]
  4. OMEPRAZOLE [Concomitant]
  5. OXYCODONE HCL AND ACETAMINOPHEN [Concomitant]
  6. PREMARIN [Concomitant]
  7. AMBIEN [Concomitant]
  8. SEREQUEL [Concomitant]
  9. NEURONTIN [Concomitant]
  10. BACLOFEN [Concomitant]
  11. GLYCOPYRROLATE [Concomitant]
  12. LASIX [Concomitant]
  13. PROVIGIL [Concomitant]
  14. STRESS TAB [Concomitant]

REACTIONS (11)
  - ANAEMIA [None]
  - CHILLS [None]
  - CHOLELITHIASIS [None]
  - CHROMATURIA [None]
  - DIARRHOEA [None]
  - HEPATIC ENZYME INCREASED [None]
  - HYPERTENSION [None]
  - MENTAL DISORDER [None]
  - NAUSEA [None]
  - VOMITING [None]
  - WEIGHT DECREASED [None]
